FAERS Safety Report 9173619 (Version 2)
Quarter: 2013Q1

REPORT INFORMATION
  Report Type: Spontaneous
  Country: US (occurrence: None)
  Receive Date: 20130318
  Receipt Date: 20130322
  Transmission Date: 20140127
  Serious: Yes (Other)
  Sender: FDA-Public Use
  Company Number: None

PATIENT
  Age: 47 Year
  Sex: Female
  Weight: 77.11 kg

DRUGS (9)
  1. KENALOG-40 INJ [Suspect]
     Indication: BACK PAIN
     Dosage: 80MG ONE TIME EPIDURAL
     Route: 008
  2. KENALOG-40 INJ [Suspect]
     Indication: INTERVERTEBRAL DISC DEGENERATION
     Dosage: 80MG ONE TIME EPIDURAL
     Route: 008
  3. TOPAMAX [Concomitant]
  4. REQUIP [Concomitant]
  5. PAXIL [Concomitant]
  6. BACLOFEN [Concomitant]
  7. DEXILANT [Concomitant]
  8. ALPRAZOLAM [Concomitant]
  9. VITAMIN B12 [Concomitant]

REACTIONS (3)
  - Musculoskeletal pain [None]
  - Neck pain [None]
  - Paraesthesia [None]
